FAERS Safety Report 20483498 (Version 1)
Quarter: 2022Q1

REPORT INFORMATION
  Report Type: Spontaneous
  Country: US (occurrence: US)
  Receive Date: 20220217
  Receipt Date: 20220217
  Transmission Date: 20220423
  Serious: No
  Sender: FDA-Public Use
  Company Number: US-drreddys-SPO/USA/22/0146900

PATIENT
  Age: 22 Year
  Sex: Male

DRUGS (1)
  1. ZENATANE [Suspect]
     Active Substance: ISOTRETINOIN
     Indication: Product used for unknown indication
     Dosage: RMA ISSUE DATE: 12 JANUARY 2022 05:22:12 PM, 29 DECEMBER 2020 03:11:46 PM, 03 NOVEMBER 2020 03:51:32

REACTIONS (1)
  - Laboratory test abnormal [Unknown]
